FAERS Safety Report 12368500 (Version 1)
Quarter: 2016Q2

REPORT INFORMATION
  Report Type: Spontaneous
  Country: US (occurrence: US)
  Receive Date: 20160513
  Receipt Date: 20160513
  Transmission Date: 20160815
  Serious: Yes (Life-Threatening)
  Sender: FDA-Public Use
  Company Number: US-BAYER-2016-089786

PATIENT
  Age: 15 Year
  Sex: Female

DRUGS (2)
  1. CORICIDIN HBP COUGH AND COLD [Suspect]
     Active Substance: CHLORPHENIRAMINE MALEATE\DEXTROMETHORPHAN HYDROBROMIDE
     Indication: DRUG ABUSE
     Dosage: 1 DF, QID (EVERY 6 HOURS)
     Route: 048
  2. CORICIDIN HBP COUGH AND COLD [Suspect]
     Active Substance: CHLORPHENIRAMINE MALEATE\DEXTROMETHORPHAN HYDROBROMIDE
     Indication: DRUG ABUSE
     Dosage: 11 DF, ONCE
     Dates: start: 20160508, end: 20160508

REACTIONS (7)
  - Dysarthria [None]
  - Drug abuse [Recovered/Resolved]
  - Memory impairment [None]
  - Gait disturbance [None]
  - Confusional state [None]
  - Intentional overdose [Recovered/Resolved]
  - Mydriasis [None]

NARRATIVE: CASE EVENT DATE: 20160508
